FAERS Safety Report 18069890 (Version 1)
Quarter: 2020Q3

REPORT INFORMATION
  Report Type: Spontaneous
  Country: CN (occurrence: CN)
  Receive Date: 20200727
  Receipt Date: 20200727
  Transmission Date: 20201103
  Serious: Yes (Other)
  Sender: FDA-Public Use
  Company Number: CN-SUN PHARMACEUTICAL INDUSTRIES LTD-2020R1-254247

PATIENT
  Age: 26 Year
  Sex: Male

DRUGS (4)
  1. CYCLOPHOSPHAMIDE. [Suspect]
     Active Substance: CYCLOPHOSPHAMIDE
     Indication: CHEMOTHERAPY
     Dosage: 450 MILLIGRAM/SQ. METER
     Route: 065
  2. VINDESINE [Suspect]
     Active Substance: VINDESINE
     Indication: CHEMOTHERAPY
     Dosage: 4 MILLIGRAM, DAILY
     Route: 065
  3. DEXAMETHASONE. [Suspect]
     Active Substance: DEXAMETHASONE
     Indication: CHEMOTHERAPY
     Dosage: 5 MILLIGRAM/SQ. METER
     Route: 065
  4. IDARUBICIN [Suspect]
     Active Substance: IDARUBICIN
     Indication: CHEMOTHERAPY
     Dosage: 7.5 MILLIGRAM/SQ. METER
     Route: 065

REACTIONS (1)
  - Cytokine release syndrome [Unknown]
